FAERS Safety Report 16895619 (Version 1)
Quarter: 2019Q4

REPORT INFORMATION
  Report Type: Spontaneous
  Country: US (occurrence: US)
  Receive Date: 20190814
  Receipt Date: 20190814
  Transmission Date: 20200122
  Serious: No
  Sender: FDA-Public Use
  Company Number: None

PATIENT
  Age: 78 Year
  Sex: Female

DRUGS (1)
  1. SUTENT [Suspect]
     Active Substance: SUNITINIB MALATE
     Indication: RENAL CANCER
     Route: 048
     Dates: start: 201902

REACTIONS (6)
  - Constipation [None]
  - Urinary tract infection [None]
  - Diarrhoea [None]
  - Hunger [None]
  - Decreased appetite [None]
  - Taste disorder [None]

NARRATIVE: CASE EVENT DATE: 20190814
